FAERS Safety Report 23902738 (Version 1)
Quarter: 2024Q2

REPORT INFORMATION
  Report Type: Spontaneous
  Country: KR (occurrence: None)
  Receive Date: 20240527
  Receipt Date: 20240527
  Transmission Date: 20240716
  Serious: Yes (Death)
  Sender: FDA-Public Use
  Company Number: KR-ROCHE-3567754

PATIENT
  Age: 42 Year
  Sex: Female
  Weight: 55 kg

DRUGS (1)
  1. AVASTIN [Suspect]
     Active Substance: BEVACIZUMAB
     Indication: Breast cancer
     Dosage: 2 DOSAGE FORM
     Route: 042
     Dates: start: 20200312, end: 20200408

REACTIONS (3)
  - Breast discharge [Fatal]
  - Wound dehiscence [Fatal]
  - Decreased appetite [Fatal]

NARRATIVE: CASE EVENT DATE: 20200325
